FAERS Safety Report 7387977 (Version 2)
Quarter: 2020Q3

REPORT INFORMATION
  Report Type: Report from Study
  Country: DE (occurrence: DE)
  Receive Date: 20100514
  Receipt Date: 20100622
  Transmission Date: 20201104
  Serious: Yes (Other)
  Sender: FDA-Public Use
  Company Number: DE-ROCHE-702414

PATIENT
  Age: 73 Year
  Sex: Female
  Weight: 95 kg

DRUGS (3)
  1. IBANDRONIC ACID. [Suspect]
     Active Substance: IBANDRONIC ACID
     Indication: PRODUCT USED FOR UNKNOWN INDICATION
     Route: 042
     Dates: start: 20100421
  2. NOVALGIN (DIPYRONE) [Concomitant]
     Active Substance: DIPYRONE
     Dosage: FREQUENCY REPORTED AS 3
  3. TRAMADOL. [Concomitant]
     Active Substance: TRAMADOL
     Dosage: FREQUENCY REPORTED AS 3

REACTIONS (3)
  - Musculoskeletal disorder [Recovered/Resolved]
  - Pain in extremity [Recovered/Resolved]
  - Pyrexia [Recovered/Resolved]

NARRATIVE: CASE EVENT DATE: 20100421
